FAERS Safety Report 19073002 (Version 2)
Quarter: 2021Q2

REPORT INFORMATION
  Report Type: Spontaneous
  Country: US (occurrence: US)
  Receive Date: 20210330
  Receipt Date: 20210401
  Transmission Date: 20210717
  Serious: Yes (Other)
  Sender: FDA-Public Use
  Company Number: US-SA-2021SA095701

PATIENT
  Age: 68 Year
  Sex: Female

DRUGS (3)
  1. LOVENOX [Suspect]
     Active Substance: ENOXAPARIN SODIUM
     Dosage: 120 MG, QD
     Route: 058
  2. LOVENOX [Suspect]
     Active Substance: ENOXAPARIN SODIUM
     Dosage: UNK UNK, QD
     Route: 058
  3. LOVENOX [Suspect]
     Active Substance: ENOXAPARIN SODIUM
     Indication: DEEP VEIN THROMBOSIS
     Dosage: 100 MG ONCE A DAY
     Route: 058

REACTIONS (3)
  - Product dose omission issue [Unknown]
  - Syringe issue [Unknown]
  - Thrombosis [Unknown]
